FAERS Safety Report 7474315-7 (Version None)
Quarter: 2011Q2

REPORT INFORMATION
  Report Type: 
  Country: None (occurrence: None)
  Receive Date: 20110511
  Receipt Date: 20110503
  Transmission Date: 20111010
  Serious: Yes (Death)
  Sender: FDA-Public Use
  Company Number: US-AMGEN-USASP2011023144

PATIENT
  Sex: Female
  Weight: 49.433 kg

DRUGS (6)
  1. METOPROLOL SUCCINATE [Concomitant]
  2. PLAQUENIL [Concomitant]
  3. NPLATE [Suspect]
     Indication: IDIOPATHIC THROMBOCYTOPENIC PURPURA
     Dosage: UNK
     Dates: start: 20110315, end: 20110329
  4. CELEBREX [Concomitant]
  5. DIOVAN [Concomitant]
  6. MELPHALAN HYDROCHLORIDE [Concomitant]

REACTIONS (4)
  - SMALL CELL LUNG CANCER METASTATIC [None]
  - ARTERIOSCLEROSIS CORONARY ARTERY [None]
  - RHEUMATOID ARTHRITIS [None]
  - COLITIS ULCERATIVE [None]
